FAERS Safety Report 5733505-1 (Version None)
Quarter: 2008Q2

REPORT INFORMATION
  Report Type: 
  Country: None (occurrence: None)
  Receive Date: 20080509
  Receipt Date: 20080501
  Transmission Date: 20081010
  Serious: Yes (Life-Threatening, Hospitalization, Other)
  Sender: FDA-Public Use
  Company Number: JP-MERCK-0804USA05031

PATIENT
  Age: 59 Year
  Sex: Male

DRUGS (1)
  1. HYZAAR [Suspect]
     Indication: HYPERTENSION
     Route: 048
     Dates: start: 20080309, end: 20080329

REACTIONS (3)
  - PANCREATITIS [None]
  - RESPIRATORY FAILURE [None]
  - URINE OUTPUT DECREASED [None]
